FAERS Safety Report 17622864 (Version 2)
Quarter: 2020Q2

REPORT INFORMATION
  Report Type: Spontaneous
  Country: US (occurrence: US)
  Receive Date: 20200403
  Receipt Date: 20200625
  Transmission Date: 20200713
  Serious: No
  Sender: FDA-Public Use
  Company Number: US-PFIZER INC-2020136672

PATIENT
  Age: 67 Year
  Sex: Male

DRUGS (3)
  1. FOLIC ACID. [Concomitant]
     Active Substance: FOLIC ACID
     Indication: RHEUMATOID ARTHRITIS
     Dosage: 1 DF, DAILY [1 TABLET BY MOUTH DAILY]
     Route: 048
  2. METHOTREXATE. [Concomitant]
     Active Substance: METHOTREXATE
     Indication: RHEUMATOID ARTHRITIS
     Dosage: 2.5 MG, WEEKLY [5, 2.5MG TABLETS BY MOUTH ONCE A WEEK]
     Route: 048
  3. XELJANZ [Suspect]
     Active Substance: TOFACITINIB CITRATE
     Indication: RHEUMATOID ARTHRITIS
     Dosage: 5 MG, ALTERNATE DAY, (5MG TABLET BY MOUTH EVERY OTHER DAY)
     Route: 048

REACTIONS (3)
  - Decreased appetite [Unknown]
  - Intentional product misuse [Unknown]
  - Weight fluctuation [Unknown]

NARRATIVE: CASE EVENT DATE: 202003
